FAERS Safety Report 8027502-3 (Version None)
Quarter: 2012Q1

REPORT INFORMATION
  Report Type: 
  Country: None (occurrence: None)
  Receive Date: 20120105
  Receipt Date: 20120105
  Transmission Date: 20120608
  Serious: No
  Sender: FDA-Public Use
  Company Number: None

PATIENT
  Age: 58 Year
  Sex: Male
  Weight: 112.9 kg

DRUGS (1)
  1. PRAVASTATIN [Suspect]
     Indication: RHABDOMYOLYSIS
     Dosage: 1/2 TAB HS PO
     Route: 048
     Dates: start: 20110824, end: 20110922

REACTIONS (1)
  - RHABDOMYOLYSIS [None]
